FAERS Safety Report 8516061 (Version 4)
Quarter: 2013Q4

REPORT INFORMATION
  Report Type: Report from Study
  Country: JP (occurrence: JP)
  Receive Date: 20120417
  Receipt Date: 20131113
  Transmission Date: 20140711
  Serious: Yes (Death, Life-Threatening, Hospitalization, Other)
  Sender: FDA-Public Use
  Company Number: JP-ROCHE-1057932

PATIENT
  Age: 9 Year
  Sex: Female
  Weight: 33 kg

DRUGS (73)
  1. TOCILIZUMAB [Suspect]
     Indication: JUVENILE IDIOPATHIC ARTHRITIS
     Route: 041
     Dates: start: 20090421, end: 20111228
  2. TOCILIZUMAB [Suspect]
     Indication: JUVENILE IDIOPATHIC ARTHRITIS
     Route: 041
     Dates: start: 20120104, end: 20120126
  3. TOCILIZUMAB [Suspect]
     Indication: JUVENILE IDIOPATHIC ARTHRITIS
     Route: 041
     Dates: start: 20120210, end: 20120224
  4. TOCILIZUMAB [Suspect]
     Indication: JUVENILE IDIOPATHIC ARTHRITIS
     Route: 041
     Dates: start: 20090728, end: 20090826
  5. TOCILIZUMAB [Suspect]
     Indication: JUVENILE IDIOPATHIC ARTHRITIS
     Route: 041
     Dates: start: 20090909
  6. PREDNISOLONE [Suspect]
     Indication: JUVENILE IDIOPATHIC ARTHRITIS
     Route: 048
     Dates: start: 2008, end: 2008
  7. PREDNISOLONE [Suspect]
     Dosage: IT IS A WEIGHT LOSS FROM 2 TO 0.2 MG/KG.
     Route: 048
     Dates: start: 2008, end: 200901
  8. PREDNISOLONE [Suspect]
     Route: 048
     Dates: start: 20090122, end: 20090125
  9. PREDNISOLONE [Suspect]
     Route: 048
     Dates: start: 20090129, end: 20090201
  10. PREDNISOLONE [Suspect]
     Route: 048
     Dates: start: 20090205, end: 20090208
  11. PREDNISOLONE [Suspect]
     Route: 048
     Dates: start: 20090209, end: 20090528
  12. PREDNISOLONE [Suspect]
     Route: 048
     Dates: start: 20090529, end: 20090601
  13. PREDNISOLONE [Suspect]
     Route: 048
     Dates: start: 20090602, end: 20090608
  14. PREDNISOLONE [Suspect]
     Route: 048
     Dates: start: 20090609, end: 20090615
  15. PREDNISOLONE [Suspect]
     Route: 048
     Dates: start: 20090616, end: 20090622
  16. PREDNISOLONE [Suspect]
     Route: 048
     Dates: start: 20090623, end: 20090629
  17. PREDNISOLONE [Suspect]
     Route: 048
     Dates: start: 20090630, end: 20090630
  18. PREDNISOLONE [Suspect]
     Route: 048
     Dates: start: 20090701, end: 20090713
  19. PREDNISOLONE [Suspect]
     Route: 048
     Dates: start: 20090714, end: 20090727
  20. PREDNISOLONE [Suspect]
     Route: 048
     Dates: start: 20090728, end: 20090811
  21. PREDNISOLONE [Suspect]
     Route: 048
     Dates: start: 20090812, end: 20090818
  22. PREDNISOLONE [Suspect]
     Route: 048
     Dates: start: 20090819, end: 20090825
  23. PREDNISOLONE [Suspect]
     Route: 048
     Dates: start: 20090826, end: 20090923
  24. PREDNISOLONE [Suspect]
     Route: 048
     Dates: start: 20090924, end: 20091020
  25. PREDNISOLONE [Suspect]
     Route: 048
     Dates: start: 20091021, end: 20091117
  26. PREDNISOLONE [Suspect]
     Route: 048
     Dates: start: 20091118, end: 20100105
  27. PREDNISOLONE [Suspect]
     Route: 048
     Dates: start: 20100106, end: 20100202
  28. PREDNISOLONE [Suspect]
     Route: 048
     Dates: start: 20100203, end: 2011
  29. PREDNISOLONE [Suspect]
     Route: 048
     Dates: start: 2011, end: 2011
  30. PREDNISOLONE [Suspect]
     Route: 048
     Dates: start: 2011, end: 20111127
  31. PREDNISOLONE [Suspect]
     Route: 048
     Dates: start: 20111128, end: 20111229
  32. PREDNISOLONE [Suspect]
     Route: 048
     Dates: start: 20120102, end: 20120102
  33. PREDNISOLONE [Suspect]
     Route: 048
     Dates: start: 20120109, end: 20120112
  34. PREDNISOLONE [Suspect]
     Route: 048
     Dates: start: 20120116, end: 20120120
  35. PREDNISOLONE [Suspect]
     Route: 048
     Dates: start: 20120121, end: 20120122
  36. PREDNISOLONE [Suspect]
     Route: 048
     Dates: start: 20120123, end: 20120205
  37. PREDNISOLONE [Suspect]
     Route: 048
     Dates: start: 20120206, end: 20120212
  38. PREDNISOLONE [Suspect]
     Route: 048
     Dates: start: 20120213, end: 20120219
  39. PREDNISOLONE [Suspect]
     Route: 048
     Dates: start: 20120220, end: 20120226
  40. METHYLPREDNISOLONE [Suspect]
     Indication: JUVENILE IDIOPATHIC ARTHRITIS
     Route: 041
     Dates: start: 2008, end: 2008
  41. METHYLPREDNISOLONE [Suspect]
     Route: 041
     Dates: start: 20090119, end: 20090121
  42. METHYLPREDNISOLONE [Suspect]
     Route: 041
     Dates: start: 20090126, end: 20090128
  43. METHYLPREDNISOLONE [Suspect]
     Route: 041
     Dates: start: 20090202, end: 20090204
  44. METHYLPREDNISOLONE [Suspect]
     Dosage: UNCERTAIN DOSAGE AND THREE COOL
     Route: 041
     Dates: start: 2011, end: 2011
  45. METHYLPREDNISOLONE [Suspect]
     Route: 041
     Dates: start: 20111230, end: 20120101
  46. METHYLPREDNISOLONE [Suspect]
     Route: 041
     Dates: start: 20120106, end: 20120108
  47. METHYLPREDNISOLONE [Suspect]
     Route: 041
     Dates: start: 20120113, end: 20120115
  48. METHYLPREDNISOLONE [Suspect]
     Route: 041
     Dates: start: 20120227, end: 20120229
  49. TACROLIMUS [Suspect]
     Indication: JUVENILE IDIOPATHIC ARTHRITIS
     Route: 048
     Dates: start: 20090209, end: 20090216
  50. TACROLIMUS [Suspect]
     Route: 048
     Dates: start: 20090217, end: 20090219
  51. TACROLIMUS [Suspect]
     Route: 048
     Dates: start: 20090220, end: 20090521
  52. TACROLIMUS [Suspect]
     Route: 048
     Dates: start: 20090522
  53. TACROLIMUS [Suspect]
     Route: 048
     Dates: start: 20120116, end: 20120120
  54. TACROLIMUS [Suspect]
     Route: 048
     Dates: start: 20120123, end: 20120219
  55. DEXAMETHASONE PALMITATE [Suspect]
     Indication: JUVENILE IDIOPATHIC ARTHRITIS
     Route: 042
     Dates: start: 20090205, end: 20090205
  56. DEXAMETHASONE PALMITATE [Suspect]
     Route: 042
     Dates: start: 20090209, end: 20090209
  57. DEXAMETHASONE PALMITATE [Suspect]
     Route: 042
     Dates: start: 20090212, end: 20090212
  58. DEXAMETHASONE PALMITATE [Suspect]
     Route: 042
     Dates: start: 20090216, end: 20090413
  59. DEXAMETHASONE PALMITATE [Suspect]
     Route: 042
     Dates: start: 20120104, end: 20120104
  60. CICLOSPORIN [Suspect]
     Indication: JUVENILE IDIOPATHIC ARTHRITIS
     Route: 041
     Dates: start: 20111230, end: 20120105
  61. CICLOSPORIN [Suspect]
     Indication: HISTIOCYTOSIS HAEMATOPHAGIC
     Route: 041
     Dates: start: 20120227, end: 20120311
  62. COLCHICINE [Concomitant]
     Indication: JUVENILE IDIOPATHIC ARTHRITIS
     Route: 048
     Dates: start: 20120116, end: 20120122
  63. COLCHICINE [Concomitant]
     Indication: JUVENILE IDIOPATHIC ARTHRITIS
     Route: 048
     Dates: start: 20120123, end: 20120226
  64. BRUFEN [Concomitant]
     Indication: JUVENILE IDIOPATHIC ARTHRITIS
     Route: 048
     Dates: start: 20080327, end: 20120301
  65. DEPAKENE-R [Concomitant]
     Indication: EPILEPSY
     Route: 048
     Dates: start: 20081212, end: 20120301
  66. ADALAT CR [Concomitant]
     Indication: HYPERTENSION
     Route: 048
     Dates: start: 20080421, end: 20120301
  67. RENIVACE [Concomitant]
     Indication: HYPERTENSION
     Route: 048
     Dates: start: 20080421, end: 20120301
  68. ALFAROL [Concomitant]
     Indication: OSTEOPOROSIS
     Route: 048
     Dates: start: 20080324, end: 20120301
  69. ACTONEL [Concomitant]
     Indication: OSTEOPOROSIS
     Route: 048
     Dates: start: 20090313, end: 20120301
  70. METHOTREXATE [Concomitant]
     Indication: JUVENILE IDIOPATHIC ARTHRITIS
     Route: 048
     Dates: start: 20110406, end: 20120301
  71. FOLIAMIN [Concomitant]
     Indication: PROPHYLAXIS
     Route: 048
     Dates: start: 20110406, end: 20120301
  72. GASTER (JAPAN) [Concomitant]
     Indication: GASTRIC ULCER
     Route: 048
     Dates: start: 20080311, end: 20120301
  73. CLOBAZAM [Concomitant]
     Indication: EPILEPSY
     Dosage: DRUG REPROTED AS MYSTAN
     Route: 048
     Dates: start: 20090306, end: 20120301

REACTIONS (11)
  - Pneumocystis jirovecii pneumonia [Fatal]
  - Traumatic haemothorax [Fatal]
  - Shock haemorrhagic [Fatal]
  - Histiocytosis haematophagic [Unknown]
  - Staphylococcal sepsis [Not Recovered/Not Resolved]
  - Juvenile idiopathic arthritis [Unknown]
  - Device related infection [Unknown]
  - Gastric ulcer haemorrhage [Recovered/Resolved]
  - Pneumothorax [Unknown]
  - Oral herpes [Unknown]
  - Juvenile idiopathic arthritis [Unknown]
